FAERS Safety Report 9455296 (Version 1)
Quarter: 2013Q3

REPORT INFORMATION
  Report Type: Spontaneous
  Country: PT (occurrence: PT)
  Receive Date: 20130813
  Receipt Date: 20130813
  Transmission Date: 20140515
  Serious: Yes (Other)
  Sender: FDA-Public Use
  Company Number: PT-JNJFOC-20121114624

PATIENT
  Age: 31 Year
  Sex: Female
  Weight: 52 kg

DRUGS (7)
  1. PREZISTA [Suspect]
     Indication: ANTIRETROVIRAL THERAPY
     Route: 048
     Dates: start: 20121126
  2. RITONAVIR [Suspect]
     Indication: ANTIRETROVIRAL THERAPY
     Dosage: 17 GESTATION WEEK
     Route: 048
     Dates: start: 20121126
  3. ATOVAQUONE [Suspect]
     Indication: ANTIFUNGAL PROPHYLAXIS
     Route: 048
     Dates: start: 20110218
  4. ZIDOVUDINE [Suspect]
     Indication: ANTIRETROVIRAL THERAPY
     Route: 048
     Dates: start: 20110218
  5. LAMIVUDINE [Suspect]
     Indication: ANTIRETROVIRAL THERAPY
     Route: 048
     Dates: start: 20110218
  6. FOLIC ACID [Concomitant]
     Route: 065
  7. FERROUS SULPHATE [Concomitant]
     Route: 065

REACTIONS (2)
  - Asthma [Unknown]
  - Exposure during pregnancy [Recovered/Resolved]
